FAERS Safety Report 8215396 (Version 2)
Quarter: 2012Q4

REPORT INFORMATION
  Report Type: 
  Country: CA (occurrence: CA)
  Receive Date: 20111031
  Receipt Date: 20120910
  Transmission Date: 20130627
  Serious: Yes (Hospitalization)
  Sender: FDA-Public Use
  Company Number: CA-JNJFOC-20111011627

PATIENT
  Age: 19 Year
  Sex: Female
  Weight: 49 kg

DRUGS (2)
  1. REMICADE [Suspect]
     Indication: COLITIS ULCERATIVE
     Route: 042
  2. REMICADE [Suspect]
     Indication: COLITIS ULCERATIVE
     Dosage: 3 treatments in total
     Route: 042
     Dates: start: 20110826, end: 2011

REACTIONS (1)
  - Ileostomy [Unknown]
